FAERS Safety Report 5821396-X (Version None)
Quarter: 2008Q3

REPORT INFORMATION
  Report Type: 
  Country: None (occurrence: None)
  Receive Date: 20080724
  Receipt Date: 20080715
  Transmission Date: 20090109
  Serious: Yes (Other)
  Sender: FDA-Public Use
  Company Number: DE-JNJFOC-20080605831

PATIENT
  Sex: Male
  Weight: 75 kg

DRUGS (8)
  1. INVEGA [Suspect]
     Indication: PARANOIA
     Route: 048
  2. INVEGA [Suspect]
     Indication: BORDERLINE PERSONALITY DISORDER
     Route: 048
  3. AURORIX [Concomitant]
     Indication: BORDERLINE PERSONALITY DISORDER
     Route: 048
  4. AURORIX [Concomitant]
     Indication: DEPRESSION
     Route: 048
  5. EPIVIR [Concomitant]
     Indication: HIV INFECTION
     Route: 048
  6. VIREAD [Concomitant]
     Indication: HIV INFECTION
     Route: 048
  7. NORVIR [Concomitant]
     Indication: HIV INFECTION
     Route: 048
  8. REYATAZ [Concomitant]
     Indication: HIV INFECTION
     Route: 048

REACTIONS (2)
  - ASTHMA [None]
  - NO THERAPEUTIC RESPONSE [None]
